FAERS Safety Report 5208996-5 (Version None)
Quarter: 2007Q1

REPORT INFORMATION
  Report Type: 
  Country: None (occurrence: None)
  Receive Date: 20070116
  Receipt Date: 20070112
  Transmission Date: 20070707
  Serious: Yes (Other)
  Sender: FDA-Public Use
  Company Number: CN-GLAXOSMITHKLINE-B0454072A

PATIENT
  Age: 48 Year
  Sex: Female

DRUGS (9)
  1. HEPTODIN [Suspect]
     Dosage: 100MG PER DAY
     Route: 048
     Dates: start: 20051013
  2. DIAMMONIUM GLYCYRRHIZINATE [Concomitant]
     Route: 042
     Dates: start: 20050929, end: 20051130
  3. GLYCYRRHIZIN [Concomitant]
     Route: 042
     Dates: start: 20051203, end: 20060424
  4. CHINESE MEDICATION [Concomitant]
     Dosage: .6G PER DAY
     Route: 042
     Dates: start: 20060202, end: 20060324
  5. TCM [Concomitant]
     Dosage: 60ML PER DAY
     Route: 042
     Dates: start: 20051101, end: 20051130
  6. GLUTATHIONE SODIUM [Concomitant]
     Dosage: 1.2G PER DAY
     Dates: start: 20060207, end: 20060314
  7. THYMOSIN [Concomitant]
     Dosage: 1.6ML TWO TIMES PER WEEK
     Dates: start: 20060125, end: 20060723
  8. INTERFERON ALPHA [Concomitant]
     Indication: NON-HODGKIN'S LYMPHOMA
     Dosage: 300ML ALTERNATE DAYS
     Route: 042
  9. TRADITIONAL CHINESE MEDICINE [Concomitant]

REACTIONS (5)
  - ALANINE AMINOTRANSFERASE INCREASED [None]
  - ASPARTATE AMINOTRANSFERASE INCREASED [None]
  - LYMPHADENOPATHY [None]
  - SPLENOMEGALY [None]
  - VIRAL HEPATITIS CARRIER [None]
